FAERS Safety Report 10249335 (Version 1)
Quarter: 2014Q2

REPORT INFORMATION
  Report Type: Report from Study
  Country: CA (occurrence: CA)
  Receive Date: 20140620
  Receipt Date: 20140620
  Transmission Date: 20141212
  Serious: Yes (Hospitalization, Other)
  Sender: FDA-Public Use
  Company Number: CA-PFIZER INC-2014164550

PATIENT
  Age: 58 Year
  Sex: Female

DRUGS (19)
  1. RAPAMUNE [Suspect]
     Indication: IMMUNOSUPPRESSION
     Dosage: 1 MG, ONCE DAILY
     Route: 048
     Dates: start: 20130531, end: 20130824
  2. RAPAMUNE [Suspect]
     Dosage: UNK
     Route: 048
     Dates: start: 20130903
  3. FK506E(MR4) [Suspect]
     Indication: RENAL TRANSPLANT
     Dosage: FORMULATION: MODIFIED-RELEASE CAPSULE, HARD
     Route: 065
     Dates: start: 20101204, end: 20130530
  4. FK506E(MR4) [Suspect]
     Indication: IMMUNOSUPPRESSION
     Dosage: FORMULATION: MODIFIED-RELEASE CAPSULE, HARD; 4 MG, ONCE DAILY
     Route: 048
     Dates: start: 20130825, end: 20130828
  5. FK506E(MR4) [Suspect]
     Dosage: FORMULATION: MODIFIED-RELEASE CAPSULE, HARD; 1 MG, ONCE DAILY
     Route: 048
     Dates: start: 20130829, end: 20130831
  6. PREDNISONE [Concomitant]
     Dosage: UNK
     Dates: start: 20101207
  7. LEFLUNOMIDE [Concomitant]
     Dosage: UNK
     Dates: start: 20130503, end: 20130908
  8. FORZA-10 [Concomitant]
  9. MAGNESIUM OXIDE [Concomitant]
  10. METOPROLOL [Concomitant]
  11. FERROUS SULFATE [Concomitant]
  12. COUMADIN [Concomitant]
  13. ATORVASTATIN [Concomitant]
  14. RAMIPRIL [Concomitant]
  15. GLYBURIDE [Concomitant]
  16. VITAMIN D [Concomitant]
  17. PANTOPRAZOLE [Concomitant]
  18. IMODIUM [Concomitant]
  19. CIPRO [Concomitant]
     Dosage: UNK
     Dates: start: 20130814, end: 20130816

REACTIONS (3)
  - Pneumocystis jirovecii pneumonia [Recovered/Resolved]
  - Atrial fibrillation [Recovered/Resolved with Sequelae]
  - Pyrexia [Recovered/Resolved]
